FAERS Safety Report 6480652-5 (Version None)
Quarter: 2009Q4

REPORT INFORMATION
  Report Type: 
  Country: None (occurrence: None)
  Receive Date: 20091203
  Receipt Date: 20091120
  Transmission Date: 20100525
  Serious: Yes (Hospitalization)
  Sender: FDA-Public Use
  Company Number: 232619J09USA

PATIENT
  Age: 47 Year
  Sex: Female
  Weight: 78 kg

DRUGS (8)
  1. REBIF [Suspect]
     Indication: MULTIPLE SCLEROSIS
     Dosage: 44 MCG, 3 IN 1 WEEKS, SUBCUTANEOUS
     Route: 058
     Dates: start: 20061031, end: 20091113
  2. REBIF [Suspect]
     Indication: MULTIPLE SCLEROSIS
     Dosage: 44 MCG, 3 IN 1 WEEKS, SUBCUTANEOUS
     Route: 058
     Dates: start: 20061031, end: 20091113
  3. HYDROCHLOROTHIAZIDE [Concomitant]
  4. POTASSIUM (POTASSIUM /00031401/) [Concomitant]
  5. NEURONTIN [Concomitant]
  6. BACLOFEN [Concomitant]
  7. PROVIGIL [Concomitant]
  8. PAXIL [Concomitant]

REACTIONS (9)
  - ANXIETY [None]
  - BLOOD POTASSIUM DECREASED [None]
  - DYSPHAGIA [None]
  - FATIGUE [None]
  - FEELING ABNORMAL [None]
  - GOITRE [None]
  - THYROID CYST [None]
  - THYROID NEOPLASM [None]
  - VOCAL CORD DISORDER [None]
